FAERS Safety Report 5722580-6 (Version None)
Quarter: 2008Q2

REPORT INFORMATION
  Report Type: 
  Country: None (occurrence: None)
  Receive Date: 20080429
  Receipt Date: 20070724
  Transmission Date: 20081010
  Serious: No
  Sender: FDA-Public Use
  Company Number: US-ASTRAZENECA-2007UW17900

PATIENT
  Age: 46 Year
  Sex: Female
  Weight: 75.7 kg

DRUGS (3)
  1. NEXIUM [Suspect]
     Indication: OESOPHAGEAL DISCOMFORT
     Route: 048
     Dates: start: 20061201
  2. NEXIUM [Suspect]
     Route: 048
     Dates: start: 20070401
  3. CHEMOTHERAPY [Concomitant]

REACTIONS (2)
  - ABDOMINAL PAIN UPPER [None]
  - SENSATION OF FOREIGN BODY [None]
